FAERS Safety Report 6972442-1 (Version None)
Quarter: 2010Q3

REPORT INFORMATION
  Report Type: 
  Country: None (occurrence: None)
  Receive Date: 20100909
  Receipt Date: 20100827
  Transmission Date: 20110219
  Serious: Yes (Hospitalization)
  Sender: FDA-Public Use
  Company Number: PHHY2010GR56547

PATIENT
  Age: 44 Year
  Sex: Male

DRUGS (1)
  1. RASILEZ HCT [Suspect]
     Dosage: 300/12.5 MG DAILY
     Dates: start: 20100101, end: 20100814

REACTIONS (2)
  - DIZZINESS [None]
  - HYPONATRAEMIA [None]
